FAERS Safety Report 7914210-X (Version None)
Quarter: 2011Q4

REPORT INFORMATION
  Report Type: 
  Country: None (occurrence: None)
  Receive Date: 20111114
  Receipt Date: 20111114
  Transmission Date: 20120403
  Serious: No
  Sender: FDA-Public Use
  Company Number: None

PATIENT
  Sex: Female

DRUGS (2)
  1. PEGASYS [Suspect]
  2. RIBAVIRIN [Suspect]
     Dosage: TAKE 3 TABLETS EVERY MORNING AND EVERY EVENING BY MOUTH (1200MG TOTAL DAILY
     Route: 048
     Dates: start: 20111007

REACTIONS (2)
  - RASH [None]
  - PRURITUS [None]
